FAERS Safety Report 5379789-3 (Version None)
Quarter: 2007Q3

REPORT INFORMATION
  Report Type: 
  Country: None (occurrence: None)
  Receive Date: 20070706
  Receipt Date: 20070626
  Transmission Date: 20080115
  Serious: Yes (Hospitalization, Other)
  Sender: FDA-Public Use
  Company Number: HQWYE814627JUN07

PATIENT
  Sex: Female
  Weight: 88.53 kg

DRUGS (1)
  1. NORPLANT SYSTEM [Suspect]
     Indication: CONTRACEPTION
     Dosage: 6 CAPSULES
     Route: 058
     Dates: start: 19930101, end: 19990101

REACTIONS (10)
  - ABDOMINAL PAIN [None]
  - DYSMENORRHOEA [None]
  - ECTOPIC PREGNANCY [None]
  - HOT FLUSH [None]
  - INFERTILITY FEMALE [None]
  - MENORRHAGIA [None]
  - MENSTRUATION IRREGULAR [None]
  - NEOPLASM MALIGNANT [None]
  - PREGNANCY [None]
  - WEIGHT INCREASED [None]
